FAERS Safety Report 21957923 (Version 1)
Quarter: 2023Q1

REPORT INFORMATION
  Report Type: Report from Study
  Country: CN (occurrence: CN)
  Receive Date: 20230206
  Receipt Date: 20230206
  Transmission Date: 20230418
  Serious: Yes (Death, Other)
  Sender: FDA-Public Use
  Company Number: CN-PFIZER INC-202300050882

PATIENT
  Age: 44 Year
  Sex: Male

DRUGS (6)
  1. CYTARABINE [Suspect]
     Active Substance: CYTARABINE
     Indication: Central nervous system lymphoma
     Dosage: 1.5 MG/M2, ON DAY -11 TO DAY -8
     Route: 042
  2. ETOPOSIDE [Suspect]
     Active Substance: ETOPOSIDE
     Indication: Central nervous system lymphoma
     Dosage: 300 MG/M2, ON DAY -4
     Route: 042
  3. CLADRIBINE [Suspect]
     Active Substance: CLADRIBINE
     Indication: Central nervous system lymphoma
     Dosage: 5 MG/M2, ON DAY -11 TO DAY -8
     Route: 042
  4. THIOTEPA [Suspect]
     Active Substance: THIOTEPA
     Indication: Central nervous system lymphoma
     Dosage: 250 MG/M2, ON DAY -11 TO DAY -10
     Route: 042
  5. BUSULFAN [Suspect]
     Active Substance: BUSULFAN
     Indication: Central nervous system lymphoma
     Dosage: 3.2 MG/KG, ON DAY -7 TO DAY -5
     Route: 042
  6. CYCLOPHOSPHAMIDE [Suspect]
     Active Substance: CYCLOPHOSPHAMIDE
     Indication: Central nervous system lymphoma
     Dosage: 40 MG/KG, ON DAY -3 TO DAY -2

REACTIONS (5)
  - Bacteraemia [Fatal]
  - Haematotoxicity [Unknown]
  - Gastrointestinal toxicity [Unknown]
  - Speech disorder developmental [Unknown]
  - Unresponsive to stimuli [Unknown]
